FAERS Safety Report 15312600 (Version 1)
Quarter: 2018Q3

REPORT INFORMATION
  Report Type: Spontaneous
  Country: ES (occurrence: ES)
  Receive Date: 20180823
  Receipt Date: 20180823
  Transmission Date: 20181010
  Serious: Yes (Other)
  Sender: FDA-Public Use
  Company Number: PHHY2018ES079618

PATIENT
  Age: 43 Year
  Sex: Male

DRUGS (3)
  1. FOLIC ACID. [Concomitant]
     Active Substance: FOLIC ACID
     Indication: DEFICIENCY ANAEMIA
     Dosage: 1 OT, QD
     Route: 048
  2. TACROLIMUS. [Suspect]
     Active Substance: TACROLIMUS
     Indication: IMMUNOSUPPRESSION
     Dosage: 10 MG, QD
     Route: 048
  3. TACROLIMUS. [Suspect]
     Active Substance: TACROLIMUS
     Indication: TRANSPLANT
     Dosage: UNK
     Route: 065

REACTIONS (7)
  - Seborrhoea [Unknown]
  - Gastrointestinal haemorrhage [Unknown]
  - Skin lesion [Unknown]
  - Haemorrhagic anaemia [Unknown]
  - Drug dose omission [Unknown]
  - Abdominal discomfort [Unknown]
  - Acne [Unknown]
